FAERS Safety Report 6711401-0 (Version None)
Quarter: 2010Q2

REPORT INFORMATION
  Report Type: 
  Country: None (occurrence: None)
  Receive Date: 20100505
  Receipt Date: 20100426
  Transmission Date: 20101027
  Serious: Yes (Other)
  Sender: FDA-Public Use
  Company Number: US-JNJFOC-20100407190

PATIENT
  Age: 44 Year
  Sex: Male
  Weight: 122.47 kg

DRUGS (6)
  1. RISPERIDONE [Suspect]
     Indication: ABNORMAL BEHAVIOUR
     Route: 048
  2. RISPERIDONE [Suspect]
     Route: 048
  3. GELNIQUE [Interacting]
     Indication: ENURESIS
     Route: 061
  4. PAXIL [Suspect]
     Indication: ABNORMAL BEHAVIOUR
     Route: 048
  5. SYNTHROID [Concomitant]
     Route: 065
  6. METOPROLOL [Concomitant]
     Route: 065

REACTIONS (4)
  - AGGRESSION [None]
  - DRUG INTERACTION [None]
  - HYPERSENSITIVITY [None]
  - SKIN LACERATION [None]
